FAERS Safety Report 5939714-0 (Version None)
Quarter: 2008Q4

REPORT INFORMATION
  Report Type: 
  Country: None (occurrence: None)
  Receive Date: 20081030
  Receipt Date: 20081030
  Transmission Date: 20090506
  Serious: Yes (Hospitalization, Disabling)
  Sender: FDA-Public Use
  Company Number: None

PATIENT
  Age: 77 Year
  Sex: Female
  Weight: 68.0396 kg

DRUGS (4)
  1. PRILOSEC [Suspect]
     Indication: GASTROOESOPHAGEAL REFLUX DISEASE
     Dosage: PRILOSEC OTC - 20MG/DAY : 40MG ONE BID
     Dates: start: 20071001, end: 20080801
  2. PRILOSEC [Suspect]
     Indication: GASTROOESOPHAGEAL REFLUX DISEASE
     Dosage: PRILOSEC OTC - 20MG/DAY : 40MG ONE BID
  3. WELLBUTRIN [Concomitant]
  4. TOPROL-XL [Concomitant]

REACTIONS (6)
  - DEPRESSION [None]
  - DYSPNOEA [None]
  - HAEMOGLOBIN DECREASED [None]
  - MULTIPLE MYELOMA [None]
  - MUSCULOSKELETAL CHEST PAIN [None]
  - RENAL FAILURE [None]
